FAERS Safety Report 5775481-1 (Version None)
Quarter: 2008Q2

REPORT INFORMATION
  Report Type: 
  Country: None (occurrence: None)
  Receive Date: 20080612
  Receipt Date: 20080603
  Transmission Date: 20081010
  Serious: Yes (Death, Hospitalization)
  Sender: FDA-Public Use
  Company Number: 2008AL006483

PATIENT
  Age: 47 Year
  Sex: Male
  Weight: 67 kg

DRUGS (3)
  1. METFORMIN HYDROCHLORIDE [Suspect]
     Indication: TYPE 2 DIABETES MELLITUS
     Dosage: 500 MG; BID; PO
     Route: 048
  2. IOHEXOL [Concomitant]
  3. GLIBENCLAMIDE [Concomitant]

REACTIONS (14)
  - ACIDOSIS [None]
  - BLOOD GLUCOSE INCREASED [None]
  - BLOOD SODIUM DECREASED [None]
  - CARDIAC ARREST [None]
  - HYPOTENSION [None]
  - INTRACRANIAL ANEURYSM [None]
  - IRRITABILITY [None]
  - LACTIC ACIDOSIS [None]
  - METABOLIC ACIDOSIS [None]
  - RENAL FAILURE [None]
  - RESPIRATORY DISTRESS [None]
  - SUBARACHNOID HAEMORRHAGE [None]
  - TACHYPNOEA [None]
  - URINE OUTPUT DECREASED [None]
